FAERS Safety Report 12056782 (Version 1)
Quarter: 2016Q1

REPORT INFORMATION
  Report Type: Spontaneous
  Country: US (occurrence: US)
  Receive Date: 20160209
  Receipt Date: 20160209
  Transmission Date: 20160526
  Serious: No
  Sender: FDA-Public Use
  Company Number: US-GLAXOSMITHKLINE-US2016014489

PATIENT
  Age: 51 Year
  Sex: Female

DRUGS (7)
  1. OESTRADIOL [Concomitant]
     Active Substance: ESTROGENS
  2. CRESTOR [Concomitant]
     Active Substance: ROSUVASTATIN CALCIUM
  3. LOVAZA [Concomitant]
     Active Substance: OMEGA-3-ACID ETHYL ESTERS
  4. PROGESTERONE. [Concomitant]
     Active Substance: PROGESTERONE
  5. PROTONIX [Concomitant]
     Active Substance: PANTOPRAZOLE SODIUM
  6. VERAMYST [Suspect]
     Active Substance: FLUTICASONE FUROATE
     Indication: PRODUCT USED FOR UNKNOWN INDICATION
     Dosage: 2 DF, 1D
     Dates: start: 20150121
  7. LINZESS [Concomitant]
     Active Substance: LINACLOTIDE

REACTIONS (2)
  - Dizziness [Unknown]
  - Blood pressure decreased [Unknown]

NARRATIVE: CASE EVENT DATE: 20160201
